FAERS Safety Report 7311180-2 (Version None)
Quarter: 2011Q1

REPORT INFORMATION
  Report Type: 
  Country: None (occurrence: None)
  Receive Date: 20110119
  Receipt Date: 20101006
  Transmission Date: 20110831
  Serious: No
  Sender: FDA-Public Use
  Company Number: A-NJ2010-40060

PATIENT
  Age: 63 Year
  Sex: Female

DRUGS (4)
  1. DIURETICS [Concomitant]
  2. TRACLEER [Suspect]
     Indication: PULMONARY ARTERIAL HYPERTENSION
     Dosage: ORAL
     Route: 048
     Dates: start: 20100918, end: 20100901
  3. WARFARIN (WARFARIN) [Concomitant]
  4. TADALAFIL [Concomitant]

REACTIONS (4)
  - FATIGUE [None]
  - OEDEMA PERIPHERAL [None]
  - RHINORRHOEA [None]
  - DYSPNOEA [None]
